FAERS Safety Report 14412510 (Version 1)
Quarter: 2018Q1

REPORT INFORMATION
  Report Type: Spontaneous
  Country: US (occurrence: US)
  Receive Date: 20180118
  Receipt Date: 20180118
  Transmission Date: 20180509
  Serious: No
  Sender: FDA-Public Use
  Company Number: None

PATIENT
  Age: 76 Year
  Sex: Female

DRUGS (1)
  1. NYSTATIN ORAL SUSPENSION [Suspect]
     Active Substance: NYSTATIN
     Indication: CANDIDA INFECTION
     Route: 048
     Dates: start: 20180112, end: 20180114

REACTIONS (4)
  - Dysgeusia [None]
  - Burn oral cavity [None]
  - Oral discomfort [None]
  - Product substitution issue [None]

NARRATIVE: CASE EVENT DATE: 20180112
